FAERS Safety Report 9732820 (Version 1)
Quarter: 2013Q4

REPORT INFORMATION
  Report Type: Spontaneous
  Country: US (occurrence: US)
  Receive Date: 20131204
  Receipt Date: 20131204
  Transmission Date: 20140711
  Serious: No
  Sender: FDA-Public Use
  Company Number: US-GILEAD-2009-0021058

PATIENT
  Age: 80 Year
  Sex: Female

DRUGS (11)
  1. LETAIRIS [Suspect]
     Indication: PULMONARY ARTERIAL HYPERTENSION
     Route: 048
     Dates: start: 20090213, end: 20090321
  2. TEKTURNA [Concomitant]
  3. CELEBREX [Concomitant]
  4. LEXAPRO [Concomitant]
  5. PLAVIX [Concomitant]
  6. NAMENDA [Concomitant]
  7. REQUIP [Concomitant]
  8. EXELON [Concomitant]
  9. BONIVA [Concomitant]
  10. CRESTOR [Concomitant]
  11. LOVAZA [Concomitant]

REACTIONS (3)
  - Abdominal pain lower [Not Recovered/Not Resolved]
  - Eye swelling [Not Recovered/Not Resolved]
  - Oedema peripheral [Not Recovered/Not Resolved]
